FAERS Safety Report 6194228-0 (Version None)
Quarter: 2009Q2

REPORT INFORMATION
  Report Type: 
  Country: None (occurrence: None)
  Receive Date: 20090515
  Receipt Date: 20090515
  Transmission Date: 20091009
  Serious: Yes (Hospitalization)
  Sender: FDA-Public Use
  Company Number: None

PATIENT
  Sex: Male

DRUGS (1)
  1. GMCSF [Suspect]
     Indication: PROSTATE CANCER
     Dosage: 250 MG/M2 QD X 14 SQ
     Route: 058
     Dates: start: 20090325

REACTIONS (1)
  - CATHETER SITE INFECTION [None]
